FAERS Safety Report 9168782 (Version 1)
Quarter: 2013Q1

REPORT INFORMATION
  Report Type: Spontaneous
  Country: US (occurrence: None)
  Receive Date: 20130314
  Receipt Date: 20130314
  Transmission Date: 20140127
  Serious: Yes (Hospitalization)
  Sender: FDA-Public Use
  Company Number: None

PATIENT
  Age: 67 Year
  Sex: Female
  Weight: 57.61 kg

DRUGS (23)
  1. GEMCITABINE [Suspect]
  2. OXALIPLATIN [Suspect]
  3. PROMETHAZINE [Concomitant]
  4. PROCHLORPRAZINE MALEATE [Concomitant]
  5. LISNOPRIL [Concomitant]
  6. SYMBICORT [Concomitant]
  7. HFA AEROSOL INHALER [Concomitant]
  8. SPIRIVA WITH HANDIHALER [Concomitant]
  9. METOCLOPRAMIDE [Concomitant]
  10. MIRTAZAPINE [Concomitant]
  11. LORAZEPAM [Concomitant]
  12. TYLENOL [Concomitant]
  13. AMLODIPINE [Concomitant]
  14. BENZONATATE [Concomitant]
  15. LISINPRIL [Concomitant]
  16. SYMBICORT HFA AEROSOL INHALER [Concomitant]
  17. SPIRIVA [Concomitant]
  18. METOCLOPRAMIDE [Concomitant]
  19. MIRTRAZAPINE [Concomitant]
  20. LORAZEPAM [Concomitant]
  21. TYLENOL [Concomitant]
  22. AMLODIPINE [Concomitant]
  23. BENZONATATE [Concomitant]

REACTIONS (1)
  - Pneumonia [None]
